FAERS Safety Report 13424348 (Version 2)
Quarter: 2017Q2

REPORT INFORMATION
  Report Type: Spontaneous
  Country: NZ (occurrence: NZ)
  Receive Date: 20170410
  Receipt Date: 20170518
  Transmission Date: 20170830
  Serious: Yes (Hospitalization)
  Sender: FDA-Public Use
  Company Number: NZ-GE HEALTHCARE LIFE SCIENCES-2017CSU000709

PATIENT

DRUGS (2)
  1. VISIPAQUE [Suspect]
     Active Substance: IODIXANOL
     Indication: HIATUS HERNIA
  2. VISIPAQUE [Suspect]
     Active Substance: IODIXANOL
     Indication: DYSPNOEA EXERTIONAL
     Dosage: 94 ML, SINGLE
     Route: 042
     Dates: start: 20170330, end: 20170330

REACTIONS (2)
  - Cough [Recovered/Resolved]
  - Dyspnoea [Recovered/Resolved]

NARRATIVE: CASE EVENT DATE: 20170330
